FAERS Safety Report 10142082 (Version 1)
Quarter: 2014Q2

REPORT INFORMATION
  Report Type: Spontaneous
  Country: US (occurrence: US)
  Receive Date: 20140429
  Receipt Date: 20140429
  Transmission Date: 20141212
  Serious: No
  Sender: FDA-Public Use
  Company Number: US-009507513-1404USA014972

PATIENT
  Sex: Female

DRUGS (2)
  1. REBETOL [Suspect]
     Dosage: UNK
     Route: 048
     Dates: end: 201401
  2. INTERFERON ALFA 1B [Suspect]
     Dosage: UNK
     Dates: end: 201401

REACTIONS (1)
  - Alopecia [Recovering/Resolving]
